FAERS Safety Report 5325679-1 (Version None)
Quarter: 2007Q2

REPORT INFORMATION
  Report Type: 
  Country: None (occurrence: None)
  Receive Date: 20070515
  Receipt Date: 20070503
  Transmission Date: 20071010
  Serious: Yes (Other)
  Sender: FDA-Public Use
  Company Number: CY-PFIZER INC-2007036473

PATIENT
  Sex: Male

DRUGS (1)
  1. EPANUTIN SUSPENSION [Suspect]

REACTIONS (1)
  - BLOOD ALCOHOL INCREASED [None]
